FAERS Safety Report 6717315-4 (Version None)
Quarter: 2010Q2

REPORT INFORMATION
  Report Type: 
  Country: None (occurrence: None)
  Receive Date: 20100510
  Receipt Date: 20100503
  Transmission Date: 20101027
  Serious: Yes (Other)
  Sender: FDA-Public Use
  Company Number: US-ELI_LILLY_AND_COMPANY-US201005000735

PATIENT
  Age: 67 Year
  Sex: Male

DRUGS (10)
  1. HUMALOG [Suspect]
     Indication: BLOOD GLUCOSE INCREASED
     Dosage: 8 U, 3/D
     Dates: start: 20091101
  2. HUMALOG [Suspect]
     Dosage: UNK, AS NEEDED
     Dates: start: 20091101
  3. BYETTA [Concomitant]
     Dosage: 5 MG, DAILY (1/D)
  4. BYETTA [Concomitant]
     Dosage: 10 MG, DAILY (1/D)
  5. GLUCOPHAGE [Concomitant]
     Dosage: 250 MG, 2/D
  6. GLUCOPHAGE [Concomitant]
     Dosage: 500 MG, 2/D
  7. GLUCOPHAGE [Concomitant]
     Dosage: 1000 MG, 2/D
  8. LANTUS [Concomitant]
     Dosage: 40 D/F, UNK
  9. PLAVIX [Concomitant]
     Dosage: UNK, QOD
  10. NITRO-SPRAY [Concomitant]
     Indication: CHEST PAIN

REACTIONS (3)
  - BLOOD CHOLESTEROL INCREASED [None]
  - DEVICE OCCLUSION [None]
  - HAEMOPTYSIS [None]
